FAERS Safety Report 13576750 (Version 1)
Quarter: 2017Q2

REPORT INFORMATION
  Report Type: Spontaneous
  Country: RU (occurrence: RU)
  Receive Date: 20170524
  Receipt Date: 20170524
  Transmission Date: 20170830
  Serious: Yes (Life-Threatening)
  Sender: FDA-Public Use
  Company Number: RU-B. BRAUN MEDICAL INC.-2021153

PATIENT
  Age: 21 Day
  Sex: Female

DRUGS (1)
  1. SODIUM CHLORIDE. [Suspect]
     Active Substance: SODIUM CHLORIDE
     Route: 042

REACTIONS (1)
  - Cyanosis neonatal [Recovering/Resolving]
